FAERS Safety Report 5876241-3 (Version None)
Quarter: 2008Q3

REPORT INFORMATION
  Report Type: 
  Country: None (occurrence: None)
  Receive Date: 20080910
  Receipt Date: 20050513
  Transmission Date: 20090109
  Serious: No
  Sender: FDA-Public Use
  Company Number: US-BAYER-200831172NA

PATIENT
  Sex: Female

DRUGS (2)
  1. AVELOX [Suspect]
     Indication: INFECTION
     Route: 065
  2. PHENAZOPYRIDINE 200 [Concomitant]
     Route: 065

REACTIONS (2)
  - DISCOMFORT [None]
  - INFECTION [None]
